FAERS Safety Report 16705627 (Version 1)
Quarter: 2019Q4

REPORT INFORMATION
  Report Type: Spontaneous
  Country: US (occurrence: US)
  Receive Date: 20190814
  Receipt Date: 20190814
  Transmission Date: 20200122
  Serious: Yes (Disabling, Other)
  Sender: FDA-Public Use
  Company Number: None

PATIENT
  Age: 40 Year
  Sex: Female
  Weight: 65.25 kg

DRUGS (1)
  1. EMGALITY [Suspect]
     Active Substance: GALCANEZUMAB-GNLM
     Indication: MIGRAINE
     Dates: start: 20190601, end: 20190814

REACTIONS (5)
  - Vertigo [None]
  - Nausea [None]
  - Migraine [None]
  - Iron deficiency anaemia [None]
  - Vomiting [None]
